FAERS Safety Report 6752603-7 (Version None)
Quarter: 2010Q2

REPORT INFORMATION
  Report Type: 
  Country: None (occurrence: None)
  Receive Date: 20100601
  Receipt Date: 20100601
  Transmission Date: 20101027
  Serious: Yes (Other)
  Sender: FDA-Public Use
  Company Number: None

PATIENT
  Sex: Female
  Weight: 74.8435 kg

DRUGS (2)
  1. ZOLPIDEM [Suspect]
     Indication: NIGHTMARE
     Dosage: 1 TABLET NOT TOO OFTEN
     Dates: start: 20020515, end: 20100301
  2. ZOLPIDEM [Suspect]
     Indication: ROAD TRAFFIC ACCIDENT
     Dosage: 1 TABLET NOT TOO OFTEN
     Dates: start: 20020515, end: 20100301

REACTIONS (3)
  - ABNORMAL BEHAVIOUR [None]
  - ALCOHOL USE [None]
  - SOMNAMBULISM [None]
